FAERS Safety Report 16756327 (Version 2)
Quarter: 2019Q4

REPORT INFORMATION
  Report Type: Spontaneous
  Country: IT (occurrence: IT)
  Receive Date: 20190829
  Receipt Date: 20191004
  Transmission Date: 20200122
  Serious: Yes (Other)
  Sender: FDA-Public Use
  Company Number: IT-ASTRAZENECA-2019SF22022

PATIENT

DRUGS (1)
  1. TAGRISSO [Suspect]
     Active Substance: OSIMERTINIB
     Indication: NON-SMALL CELL LUNG CANCER STAGE IV
     Route: 048
     Dates: start: 20190405, end: 20190628

REACTIONS (1)
  - Malignant neoplasm progression [Unknown]
